FAERS Safety Report 8542077-8 (Version None)
Quarter: 2012Q3

REPORT INFORMATION
  Report Type: 
  Country: None (occurrence: None)
  Receive Date: 20120726
  Receipt Date: 20120412
  Transmission Date: 20120928
  Serious: No
  Sender: FDA-Public Use
  Company Number: US-ASTRAZENECA-2011SE63137

PATIENT
  Age: 32 Year
  Sex: Male

DRUGS (2)
  1. SEROQUEL XR [Suspect]
     Route: 048
  2. OTHER [Suspect]
     Route: 065

REACTIONS (6)
  - INJECTION SITE PAIN [None]
  - DRUG DOSE OMISSION [None]
  - DREAMY STATE [None]
  - INSOMNIA [None]
  - PANIC DISORDER [None]
  - ANXIETY [None]
